FAERS Safety Report 20939572 (Version 1)
Quarter: 2022Q2

REPORT INFORMATION
  Report Type: Spontaneous
  Country: US (occurrence: None)
  Receive Date: 20220609
  Receipt Date: 20220609
  Transmission Date: 20220721
  Serious: Yes (Hospitalization)
  Sender: FDA-Public Use
  Company Number: None

PATIENT
  Age: 24 Year
  Sex: Male
  Weight: 58.1 kg

DRUGS (3)
  1. METHOTREXATE [Suspect]
     Active Substance: METHOTREXATE
     Dates: end: 20220414
  2. PEGASPARGASE [Suspect]
     Active Substance: PEGASPARGASE
     Dates: end: 20220405
  3. VINCRISTINE SULFATE [Suspect]
     Active Substance: VINCRISTINE SULFATE
     Dates: end: 20220404

REACTIONS (5)
  - Pneumonia [None]
  - Febrile neutropenia [None]
  - Pulmonary embolism [None]
  - Rhinovirus infection [None]
  - Pneumonia fungal [None]

NARRATIVE: CASE EVENT DATE: 20220607
